FAERS Safety Report 6673997-7 (Version None)
Quarter: 2010Q2

REPORT INFORMATION
  Report Type: 
  Country: None (occurrence: None)
  Receive Date: 20100409
  Receipt Date: 20100212
  Transmission Date: 20101027
  Serious: No
  Sender: FDA-Public Use
  Company Number: A0842354A

PATIENT
  Age: 15 Year
  Sex: Male

DRUGS (2)
  1. EXTINA [Suspect]
     Indication: ERYTHRASMA
     Dosage: 1APP TWICE PER DAY
     Route: 061
     Dates: start: 20091222, end: 20100201
  2. SINGULAIR [Concomitant]

REACTIONS (1)
  - DRUG INEFFECTIVE [None]
